FAERS Safety Report 10268488 (Version 1)
Quarter: 2014Q2

REPORT INFORMATION
  Report Type: Report from Study
  Country: DE (occurrence: DE)
  Receive Date: 20140630
  Receipt Date: 20140630
  Transmission Date: 20141212
  Serious: Yes (Hospitalization, Other)
  Sender: FDA-Public Use
  Company Number: DE-ROCHE-1426882

PATIENT
  Age: 76 Year
  Sex: Male
  Weight: 82 kg

DRUGS (7)
  1. BEVACIZUMAB [Suspect]
     Indication: COLORECTAL CANCER
     Route: 042
     Dates: start: 20140226
  2. 5-FLUOROURACIL [Concomitant]
     Indication: COLORECTAL CANCER
     Route: 040
     Dates: start: 20140226, end: 20140624
  3. 5-FLUOROURACIL [Concomitant]
     Route: 042
     Dates: start: 20140226, end: 20140624
  4. FOLINIC ACID [Concomitant]
     Indication: COLORECTAL CANCER
     Route: 042
     Dates: start: 20140226, end: 20140624
  5. OXALIPLATIN [Concomitant]
     Indication: COLORECTAL CANCER
     Route: 042
     Dates: start: 20140226, end: 20140623
  6. LOSARTAN [Concomitant]
     Indication: HYPERTENSION
     Route: 048
  7. GRANISETRON [Concomitant]
     Indication: VOMITING
     Route: 048
     Dates: start: 20140226

REACTIONS (3)
  - Syncope [Recovered/Resolved]
  - Pulmonary embolism [Unknown]
  - Sinus tachycardia [Unknown]
